FAERS Safety Report 19957565 (Version 1)
Quarter: 2021Q4

REPORT INFORMATION
  Report Type: Spontaneous
  Country: DE (occurrence: DE)
  Receive Date: 20211014
  Receipt Date: 20211014
  Transmission Date: 20220303
  Serious: Yes (Hospitalization, Disabling, Other)
  Sender: FDA-Public Use
  Company Number: DE-002147023-NVSC2020DE007012

PATIENT
  Sex: Male

DRUGS (25)
  1. VALSARTAN [Suspect]
     Active Substance: VALSARTAN
     Indication: Product used for unknown indication
     Dosage: UNK UNK, QD (UNK, QD (IN THE MORNING))
     Route: 065
  2. VALSARTAN [Suspect]
     Active Substance: VALSARTAN
     Dosage: BID (ONCE IN MORNING, ONCE IN EVENING (1-0-1)) QD(IN MORNING)
     Route: 065
  3. VALSARTAN [Suspect]
     Active Substance: VALSARTAN
     Indication: Product used for unknown indication
     Dosage: 320 MILLIGRAM
     Route: 065
  4. VALSARTAN [Suspect]
     Active Substance: VALSARTAN
     Dosage: 80 MILLIGRAM, START DATE: DEC-2014,END DATE: 2015
     Route: 065
  5. VALSARTAN [Suspect]
     Active Substance: VALSARTAN
     Dosage: 25 MILLIGRAM, QD (START DATE: 2015)
     Route: 065
  6. VALSARTAN [Suspect]
     Active Substance: VALSARTAN
     Dosage: 320/25 MG, QD (START DATE: 2015, END DATE: MAY-2016)
     Route: 065
  7. VALSARTAN [Suspect]
     Active Substance: VALSARTAN
     Dosage: 320/25 MG, QD(START DATE: JUL-2016, END DATE: APR-2017)
     Route: 065
  8. VALSARTAN [Suspect]
     Active Substance: VALSARTAN
     Dosage: 320/25 MG, QD (START DATE: JUL-2017, END DATE: OCT-2017)
     Route: 065
  9. VALSARTAN [Suspect]
     Active Substance: VALSARTAN
     Dosage: 320/25 MG, QD (START DATE: JAN-2018, END DATE: APR-2018)
     Route: 065
  10. VALSARTAN [Suspect]
     Active Substance: VALSARTAN
     Indication: Product used for unknown indication
     Dosage: 320MG / 25MG (START DATE: OCT-2017, END DATE: JAN-2018)
     Route: 065
  11. VALSARTAN [Suspect]
     Active Substance: VALSARTAN
     Dosage: 320MG / 25MG (START DATE:APR-2018, END DATE:JUL-2018)
     Route: 065
  12. ALLOPURINOL [Concomitant]
     Active Substance: ALLOPURINOL
     Indication: Product used for unknown indication
     Dosage: 300 MG, QD (EVENING)
     Route: 065
  13. PANTOPRAZOLE [Concomitant]
     Active Substance: PANTOPRAZOLE
     Indication: Product used for unknown indication
     Dosage: 20 MILLIGRAM, QD (20 MG, QD)
     Route: 065
  14. OMEPRAZOLE [Concomitant]
     Active Substance: OMEPRAZOLE
     Indication: Product used for unknown indication
     Dosage: 20 MG, QD (MORNING)
     Route: 065
  15. DIPYRONE [Concomitant]
     Active Substance: DIPYRONE
     Indication: Product used for unknown indication
     Dosage: 4 DF, QD (500 MG / 30 GTT)
     Route: 065
  16. ACETAMINOPHEN\CAFFEINE\PROPYPHENAZONE [Concomitant]
     Active Substance: ACETAMINOPHEN\CAFFEINE\PROPYPHENAZONE
     Indication: Product used for unknown indication
     Dosage: 500 MILLIGRAM (500 MG (4X DAILY IF NEEDED))
     Route: 065
  17. ARCOXIA [Concomitant]
     Active Substance: ETORICOXIB
     Indication: Product used for unknown indication
     Dosage: 90 MILLIGRAM, QD
     Route: 065
  18. ARCOXIA [Concomitant]
     Active Substance: ETORICOXIB
     Dosage: PRN, (UNK (AS NEEDED))`
     Route: 065
  19. BISOPROLOL FUMARATE [Concomitant]
     Active Substance: BISOPROLOL FUMARATE
     Indication: Product used for unknown indication
     Dosage: UNK, QD (? X 5 MG)
     Route: 065
  20. BISOPROLOL [Concomitant]
     Active Substance: BISOPROLOL
     Indication: Product used for unknown indication
     Dosage: (2 DF, BID (TWICE IN THE MORNING, TWICE IN EVENING (2-0-2)
     Route: 065
  21. BISOPROLOL [Concomitant]
     Active Substance: BISOPROLOL
     Dosage: 10 MILLIGRAM, QD (5 MG, BID (MORNING AND EVENING)))
     Route: 065
  22. BISOPROLOL [Concomitant]
     Active Substance: BISOPROLOL
     Dosage: UNK, QD (1.5X 2.5 MG, MORNING)
     Route: 065
  23. BISOPROLOL [Concomitant]
     Active Substance: BISOPROLOL
     Dosage: 2.5 MILLIGRAM, QD
     Route: 065
  24. BISOPROLOL [Concomitant]
     Active Substance: BISOPROLOL
     Dosage: UNK, AM
     Route: 065
  25. VALSARTAN [Concomitant]
     Active Substance: VALSARTAN
     Indication: Product used for unknown indication
     Dosage: UNK, QD (320/25 MG, IN MORNING)
     Route: 065

REACTIONS (81)
  - Breathing-related sleep disorder [Unknown]
  - Respiratory disorder [Unknown]
  - Cardiovascular disorder [Unknown]
  - Pulmonary congestion [Unknown]
  - Bundle branch block left [Unknown]
  - Ventricular extrasystoles [Unknown]
  - Cardiomegaly [Unknown]
  - Congestive cardiomyopathy [Unknown]
  - Cardiac dysfunction [Unknown]
  - Ejection fraction abnormal [Unknown]
  - Dyspnoea [Unknown]
  - Dyspnoea exertional [Unknown]
  - Sleep apnoea syndrome [Unknown]
  - Syncope [Unknown]
  - Cardiac failure [Unknown]
  - Leukaemia [Unknown]
  - Gastrointestinal tract adenoma [Unknown]
  - Sleep disorder [Unknown]
  - Gastrointestinal neoplasm [Unknown]
  - Blood thyroid stimulating hormone increased [Unknown]
  - Haemorrhoidal haemorrhage [Unknown]
  - General physical health deterioration [Unknown]
  - Pulmonary hypertension [Unknown]
  - Left ventricular dysfunction [Unknown]
  - Middle insomnia [Unknown]
  - Rectal polyp [Unknown]
  - Atrial fibrillation [Unknown]
  - Adenoma benign [Unknown]
  - Goitre [Unknown]
  - Waldenstrom^s macroglobulinaemia [Unknown]
  - Gastrointestinal dysplasia [Unknown]
  - Somnolence [Unknown]
  - Hyperhidrosis [Unknown]
  - Tachycardia [Unknown]
  - Skin mass [Unknown]
  - Insomnia [Unknown]
  - Dysphagia [Unknown]
  - Dizziness [Unknown]
  - Shock [Unknown]
  - Asthenia [Unknown]
  - Deafness [Unknown]
  - Drug abuse [Recovered/Resolved]
  - Mitral valve incompetence [Unknown]
  - Aortic valve incompetence [Unknown]
  - Ascites [Unknown]
  - Tricuspid valve incompetence [Unknown]
  - Hypothyroidism [Unknown]
  - Hyperthyroidism [Unknown]
  - Gastritis erosive [Unknown]
  - Rheumatoid arthritis [Unknown]
  - Gait disturbance [Unknown]
  - Quality of life decreased [Unknown]
  - Gammopathy [Unknown]
  - Emotional distress [Unknown]
  - Ulcer [Recovered/Resolved]
  - Oedema peripheral [Recovering/Resolving]
  - Gastrooesophageal reflux disease [Unknown]
  - Body fat disorder [Unknown]
  - Blood uric acid increased [Unknown]
  - Motor dysfunction [Unknown]
  - Diverticulum intestinal [Unknown]
  - Depression [Unknown]
  - Gout [Unknown]
  - Urinary incontinence [Unknown]
  - Acarodermatitis [Recovered/Resolved]
  - Hepatomegaly [Unknown]
  - Sinonasal obstruction [Unknown]
  - Bronchitis [Unknown]
  - Discouragement [Unknown]
  - Memory impairment [Unknown]
  - Anxiety [Unknown]
  - Alcohol abuse [Recovered/Resolved]
  - Hepatic steatosis [Unknown]
  - Arthralgia [Unknown]
  - Peripheral swelling [Unknown]
  - Fatigue [Unknown]
  - Rash pruritic [Recovering/Resolving]
  - Cough [Unknown]
  - Nausea [Unknown]
  - Weight increased [Recovering/Resolving]
  - Hypotension [Unknown]

NARRATIVE: CASE EVENT DATE: 20140101
